FAERS Safety Report 5360211-8 (Version None)
Quarter: 2007Q2

REPORT INFORMATION
  Report Type: 
  Country: None (occurrence: None)
  Receive Date: 20070618
  Receipt Date: 20070611
  Transmission Date: 20071010
  Serious: Yes (Other)
  Sender: FDA-Public Use
  Company Number: PHNU2007DE02099

PATIENT
  Age: 73 Year
  Sex: Female

DRUGS (2)
  1. DIOVAN [Suspect]
     Indication: HYPERTENSION
     Route: 048
     Dates: end: 20070606
  2. DIOVAN [Suspect]
     Dosage: REDUCED DOSAGE
     Route: 048
     Dates: start: 20070607

REACTIONS (4)
  - ARTHROPATHY [None]
  - LICHENOID KERATOSIS [None]
  - PAROSMIA [None]
  - VITREOUS OPACITIES [None]
